FAERS Safety Report 4426172-0 (Version None)
Quarter: 2004Q3

REPORT INFORMATION
  Report Type: 
  Country: None (occurrence: None)
  Receive Date: 20040811
  Receipt Date: 20040805
  Transmission Date: 20050211
  Serious: Yes (Other)
  Sender: FDA-Public Use
  Company Number: 200411296BCC

PATIENT
  Age: 43 Year
  Sex: Female
  Weight: 108.8633 kg

DRUGS (1)
  1. ASPIRIN [Suspect]
     Indication: MIGRAINE
     Dosage: 2275 MG, TOTAL DAILY, ORAL
     Route: 048

REACTIONS (4)
  - DYSPNOEA [None]
  - FOREIGN BODY TRAUMA [None]
  - LUNG DISORDER [None]
  - WHEEZING [None]
